FAERS Safety Report 23055877 (Version 7)
Quarter: 2025Q2

REPORT INFORMATION
  Report Type: Report from Study
  Country: CA (occurrence: CA)
  Receive Date: 20231011
  Receipt Date: 20250527
  Transmission Date: 20250717
  Serious: Yes (Other)
  Sender: TAKEDA
  Company Number: CA-TAKEDA-2023TUS097788

PATIENT
  Sex: Female

DRUGS (4)
  1. VEDOLIZUMAB [Suspect]
     Active Substance: VEDOLIZUMAB
     Indication: Colitis ulcerative
  2. VEDOLIZUMAB [Suspect]
     Active Substance: VEDOLIZUMAB
     Indication: Colitis ulcerative
     Dosage: 108 MILLIGRAM, Q2WEEKS
     Dates: start: 20231215, end: 202407
  3. MESALAMINE [Concomitant]
     Active Substance: MESALAMINE
  4. Cortiment [Concomitant]

REACTIONS (4)
  - Clostridium difficile infection [Recovering/Resolving]
  - Frequent bowel movements [Unknown]
  - Haemorrhoidal haemorrhage [Unknown]
  - Drug ineffective [Unknown]
